FAERS Safety Report 15580119 (Version 1)
Quarter: 2018Q4

REPORT INFORMATION
  Report Type: Spontaneous
  Country: US (occurrence: US)
  Receive Date: 20181102
  Receipt Date: 20181102
  Transmission Date: 20190205
  Serious: Yes (Hospitalization, Other)
  Sender: FDA-Public Use
  Company Number: US-ETHYPHARM-201600764

PATIENT
  Age: 23 Year
  Sex: Female

DRUGS (1)
  1. BUPRENORPHINE; NALOXONE [Suspect]
     Active Substance: BUPRENORPHINE\NALOXONE
     Indication: DRUG DEPENDENCE
     Route: 065

REACTIONS (2)
  - Hepatitis acute [Recovering/Resolving]
  - Liver injury [Recovering/Resolving]
